FAERS Safety Report 16411414 (Version 1)
Quarter: 2019Q2

REPORT INFORMATION
  Report Type: Spontaneous
  Country: CA (occurrence: CA)
  Receive Date: 20190610
  Receipt Date: 20190610
  Transmission Date: 20190711
  Serious: Yes (Other)
  Sender: FDA-Public Use
  Company Number: CA-TEVA-2019-CA-1060483

PATIENT
  Age: 64 Year
  Sex: Female

DRUGS (4)
  1. ARAVA [Concomitant]
     Active Substance: LEFLUNOMIDE
     Dosage: 20 MILLIGRAM
  2. PREDNISONE. [Suspect]
     Active Substance: PREDNISONE
     Indication: RHEUMATOID ARTHRITIS
     Route: 065
  3. PREDNISONE. [Suspect]
     Active Substance: PREDNISONE
     Indication: ARTHRITIS
     Route: 065
  4. XELJANZ [Suspect]
     Active Substance: TOFACITINIB CITRATE
     Indication: RHEUMATOID ARTHRITIS
     Dosage: 10 MILLIGRAM DAILY;
     Route: 048

REACTIONS (6)
  - Lymphadenopathy [Unknown]
  - Lymphoma [Unknown]
  - Arthropathy [Unknown]
  - Condition aggravated [Unknown]
  - Product dose omission [Unknown]
  - Diarrhoea [Unknown]
